FAERS Safety Report 18169047 (Version 4)
Quarter: 2021Q1

REPORT INFORMATION
  Report Type: Spontaneous
  Country: US (occurrence: US)
  Receive Date: 20200819
  Receipt Date: 20210311
  Transmission Date: 20210419
  Serious: No
  Sender: FDA-Public Use
  Company Number: US-PFIZER INC-2020256699

PATIENT
  Age: 42 Year
  Sex: Female

DRUGS (3)
  1. IBRANCE [Suspect]
     Active Substance: PALBOCICLIB
     Dosage: 125 MG, CYCLIC (EVERY OTHER DAY FOR AN UNSPECIFIED PERIOD AND 1 WEEK OFF)
     Dates: start: 20200706
  2. IBRANCE [Suspect]
     Active Substance: PALBOCICLIB
     Dosage: 125 MG
     Dates: start: 20200705
  3. IBRANCE [Suspect]
     Active Substance: PALBOCICLIB
     Dosage: UNK
     Dates: start: 20200817

REACTIONS (6)
  - Extra dose administered [Unknown]
  - Headache [Recovering/Resolving]
  - Dry skin [Unknown]
  - Constipation [Recovering/Resolving]
  - Pollakiuria [Unknown]
  - Fatigue [Recovering/Resolving]

NARRATIVE: CASE EVENT DATE: 2020
